FAERS Safety Report 4593803-4 (Version None)
Quarter: 2005Q1

REPORT INFORMATION
  Report Type: 
  Country: None (occurrence: None)
  Receive Date: 20050301
  Receipt Date: 20050217
  Transmission Date: 20050727
  Serious: Yes (Other)
  Sender: FDA-Public Use
  Company Number: PHBS2005ES02680

PATIENT
  Age: 73 Year
  Sex: Female

DRUGS (4)
  1. STEROIDS NOS [Concomitant]
  2. INSULIN [Concomitant]
  3. ANTIHYPERTENSIVES [Concomitant]
  4. SANDIMMUNE [Suspect]
     Indication: PYODERMA GANGRENOSUM
     Route: 065
     Dates: start: 20050207, end: 20050211

REACTIONS (3)
  - HEMIPARESIS [None]
  - HEMIPLEGIA [None]
  - LACUNAR INFARCTION [None]
